FAERS Safety Report 26118180 (Version 1)
Quarter: 2025Q4

REPORT INFORMATION
  Report Type: Spontaneous
  Country: US (occurrence: US)
  Receive Date: 20251203
  Receipt Date: 20251203
  Transmission Date: 20260118
  Serious: No
  Sender: ALEXION PHARMACEUTICALS
  Company Number: US-ASTRAZENECA-202511NAM024278US

PATIENT
  Age: 47 Year
  Sex: Female

DRUGS (7)
  1. FULVESTRANT [Suspect]
     Active Substance: FULVESTRANT
     Route: 065
  2. FULVESTRANT [Suspect]
     Active Substance: FULVESTRANT
  3. LORAZEPAM [Concomitant]
     Active Substance: LORAZEPAM
  4. ABEMACICLIB [Concomitant]
     Active Substance: ABEMACICLIB
  5. PALBOCICLIB [Concomitant]
     Active Substance: PALBOCICLIB
  6. ZOMETA [Concomitant]
     Active Substance: ZOLEDRONIC ACID
  7. LEUPROLIDE [Concomitant]
     Active Substance: LEUPROLIDE

REACTIONS (2)
  - Injection site pain [Unknown]
  - Fatigue [Unknown]
